FAERS Safety Report 8402388-3 (Version None)
Quarter: 2012Q2

REPORT INFORMATION
  Report Type: 
  Country: None (occurrence: None)
  Receive Date: 20120601
  Receipt Date: 20120523
  Transmission Date: 20120825
  Serious: Yes (Hospitalization)
  Sender: FDA-Public Use
  Company Number: US-OPTIMER-20120069

PATIENT
  Sex: Female
  Weight: 70.5 kg

DRUGS (4)
  1. ALBUMIN NOS [Concomitant]
     Dosage: UNK
  2. KEPPRA [Concomitant]
     Dosage: UNK
  3. PEPCID [Concomitant]
     Dosage: UNK
  4. DIFICID [Suspect]
     Indication: CLOSTRIDIUM DIFFICILE COLITIS
     Dosage: 200 MG, BID
     Route: 048
     Dates: start: 20120511

REACTIONS (1)
  - HYPERAMMONAEMIA [None]
